FAERS Safety Report 17555735 (Version 2)
Quarter: 2020Q1

REPORT INFORMATION
  Report Type: Spontaneous
  Country: DE (occurrence: DE)
  Receive Date: 20200318
  Receipt Date: 20200324
  Transmission Date: 20200409
  Serious: Yes (Hospitalization, Other)
  Sender: FDA-Public Use
  Company Number: DE-PFIZER INC-2020112295

PATIENT

DRUGS (1)
  1. CYTOTEC [Suspect]
     Active Substance: MISOPROSTOL
     Indication: LABOUR INDUCTION
     Dosage: 2 ADMINISTRATIONS AS TABLET AT AN INTERVAL OF FIVE HOURS
     Route: 064
     Dates: start: 20190813, end: 20190813

REACTIONS (8)
  - Neonatal hypoxia [Unknown]
  - Birth trauma [Not Recovered/Not Resolved]
  - Anaemia neonatal [Unknown]
  - Laboratory test abnormal [Unknown]
  - Apgar score low [Unknown]
  - Muscular weakness [Unknown]
  - Foetal exposure during delivery [Unknown]
  - Asthenia [Unknown]

NARRATIVE: CASE EVENT DATE: 20190813
